FAERS Safety Report 11826820 (Version 2)
Quarter: 2016Q3

REPORT INFORMATION
  Report Type: Other
  Country: US (occurrence: US)
  Receive Date: 20151211
  Receipt Date: 20160708
  Transmission Date: 20161109
  Serious: No
  Sender: FDA-Public Use
  Company Number: US-SHIRE-US201515133

PATIENT
  Age: 36 Year
  Sex: Female
  Weight: 78.4 kg

DRUGS (7)
  1. CALCIUM CARBONATE AND VITAMIN D [Concomitant]
     Indication: HYPOPARATHYROIDISM
     Dosage: 600MG/400 IU, UNKNOWN
     Route: 065
     Dates: start: 20091221
  2. NATPARA (PARATHYROID HORMONE) [Suspect]
     Active Substance: PARATHYROID HORMONE
     Indication: HYPOPARATHYROIDISM
     Dosage: 50 ?G, UNKNOWN
     Route: 058
     Dates: start: 20150608
  3. NATPARA (PARATHYROID HORMONE) [Suspect]
     Active Substance: PARATHYROID HORMONE
     Dosage: 75 ?G, 1X/DAY:QD
     Route: 058
     Dates: start: 201505
  4. NATURE-THROID [Concomitant]
     Active Substance: THYROID, PORCINE
     Indication: HYPOPARATHYROIDISM
     Dosage: 1.5 G EVERY MORNING, 1/2 EVERY EVENING
     Route: 065
     Dates: start: 20091210
  5. NATPARA (PARATHYROID HORMONE) [Suspect]
     Active Substance: PARATHYROID HORMONE
     Indication: HYPOPARATHYROIDISM
     Dosage: UNK UNK, UNKNOWN
     Route: 058
     Dates: start: 20150608
  6. CALCITRIOL. [Concomitant]
     Active Substance: CALCITRIOL
     Indication: HYPOPARATHYROIDISM
     Dosage: 0.25 ?G, 1X/DAY:QD
     Route: 065
     Dates: start: 20091221
  7. DYAZIDE [Concomitant]
     Active Substance: HYDROCHLOROTHIAZIDE\TRIAMTERENE
     Indication: HYPOPARATHYROIDISM
     Dosage: 37.5/25 MG, 1X/DAY:QD
     Route: 065
     Dates: start: 20091221

REACTIONS (5)
  - Paraesthesia [Unknown]
  - Muscle spasms [Unknown]
  - Drug dose omission [Unknown]
  - Device breakage [Recovered/Resolved]
  - Hypocalcaemia [Unknown]

NARRATIVE: CASE EVENT DATE: 20151111
